FAERS Safety Report 4507429-1 (Version None)
Quarter: 2004Q4

REPORT INFORMATION
  Report Type: 
  Country: None (occurrence: None)
  Receive Date: 20041118
  Receipt Date: 20041110
  Transmission Date: 20050328
  Serious: Yes (Other)
  Sender: FDA-Public Use
  Company Number: HQWYE636930JUL04

PATIENT
  Age: 56 Year
  Sex: Female
  Weight: 107.14 kg

DRUGS (1)
  1. PREMPRO [Suspect]
     Indication: HORMONE REPLACEMENT THERAPY
     Dosage: ORAL
     Route: 048
     Dates: start: 19981114, end: 20030308

REACTIONS (2)
  - COMPLEMENT FACTOR C3 INCREASED [None]
  - SYSTEMIC LUPUS ERYTHEMATOSUS [None]
